FAERS Safety Report 7954486-6 (Version None)
Quarter: 2011Q4

REPORT INFORMATION
  Report Type: 
  Country: None (occurrence: None)
  Receive Date: 20111202
  Receipt Date: 20111124
  Transmission Date: 20120403
  Serious: Yes (Hospitalization, Disabling, Other)
  Sender: FDA-Public Use
  Company Number: JP-BRISTOL-MYERS SQUIBB COMPANY-16262883

PATIENT
  Age: 22 Year
  Sex: Male
  Weight: 82 kg

DRUGS (4)
  1. VALPROIC ACID [Suspect]
  2. METFORMIN HCL [Suspect]
     Indication: TYPE 2 DIABETES MELLITUS
     Dosage: METFORMIN/METGLUCO:4800 ONCE
     Route: 048
  3. ACARBOSE [Suspect]
     Indication: TYPE 2 DIABETES MELLITUS
  4. FLUNITRAZEPAM [Suspect]

REACTIONS (5)
  - RENAL IMPAIRMENT [None]
  - PROTHROMBIN LEVEL DECREASED [None]
  - LACTIC ACIDOSIS [None]
  - SUICIDE ATTEMPT [None]
  - INTENTIONAL OVERDOSE [None]
